FAERS Safety Report 25869550 (Version 1)
Quarter: 2025Q3

REPORT INFORMATION
  Report Type: Spontaneous
  Country: US (occurrence: None)
  Receive Date: 20250930
  Receipt Date: 20250930
  Transmission Date: 20251021
  Serious: Yes (Disabling)
  Sender: FDA-CTU
  Company Number: None

PATIENT
  Age: 55 Year
  Sex: Female
  Weight: 72 kg

DRUGS (1)
  1. CANDEE CAINE TOPICAL ANESTHETIC [Suspect]
     Active Substance: BENZOCAINE
     Indication: Dental cleaning
     Route: 061
     Dates: start: 20250902, end: 20250902

REACTIONS (7)
  - Drug hypersensitivity [None]
  - Dry mouth [None]
  - Dysgeusia [None]
  - Hypoaesthesia oral [None]
  - Salivary hypersecretion [None]
  - Aphasia [None]
  - Oral disorder [None]

NARRATIVE: CASE EVENT DATE: 20250902
